FAERS Safety Report 5295162-0 (Version None)
Quarter: 2007Q2

REPORT INFORMATION
  Report Type: 
  Country: None (occurrence: None)
  Receive Date: 20070412
  Receipt Date: 20070405
  Transmission Date: 20071010
  Serious: Yes (Disabling)
  Sender: FDA-Public Use
  Company Number: US-BOEHRINGER INGELHEIM PHARMACEUTICALS, INC.-2007-BP-03386BP

PATIENT
  Age: 65 Year
  Sex: Male

DRUGS (8)
  1. FLOMAX [Suspect]
     Indication: BENIGN PROSTATIC HYPERPLASIA
     Dates: start: 20020101
  2. ISORDIL [Concomitant]
  3. PRILOSEC [Concomitant]
  4. REGLAN [Concomitant]
  5. MEVACOR [Concomitant]
  6. ATENOLOL [Concomitant]
  7. CITALOPRAM HYDROBROMIDE [Concomitant]
  8. MAXZIDE [Concomitant]

REACTIONS (1)
  - EYE OPERATION COMPLICATION [None]
